FAERS Safety Report 22100766 (Version 1)
Quarter: 2023Q1

REPORT INFORMATION
  Report Type: Report from Study
  Country: BE (occurrence: BE)
  Receive Date: 20230316
  Receipt Date: 20230316
  Transmission Date: 20230417
  Serious: Yes (Hospitalization, Other)
  Sender: FDA-Public Use
  Company Number: BE-CELLTRION INC.-2023BE005440

PATIENT

DRUGS (22)
  1. BEVACIZUMAB [Suspect]
     Active Substance: BEVACIZUMAB
     Indication: Ovarian cancer
     Dosage: 15 MG/KG, TIW
     Dates: start: 20160913
  2. CARBOPLATIN [Suspect]
     Active Substance: CARBOPLATIN
     Indication: Ovarian cancer
     Dosage: 720.95 MG, TIW
     Dates: start: 20160913, end: 20160913
  3. CARBOPLATIN [Suspect]
     Active Substance: CARBOPLATIN
     Dosage: 720.95 MG, TIW (2162.85 MG EVERY 3 WEEKS)
     Dates: start: 20160426, end: 20160913
  4. CARBOPLATIN [Suspect]
     Active Substance: CARBOPLATIN
     Indication: Ovarian cancer
     Dosage: 720.95 MG, TIW (2162.85 MG EVERY 3 WEEKS)
     Dates: start: 20160426, end: 20160913
  5. CARBOPLATIN [Suspect]
     Active Substance: CARBOPLATIN
     Dosage: 720.95 MG, TIW (2162.85 EVERY 3 WEEKS)
     Dates: start: 20160913, end: 20160913
  6. PACLITAXEL [Suspect]
     Active Substance: PACLITAXEL
     Indication: Ovarian cancer
     Dosage: 1 UNK, TIW (EVERY 3 WEEKS)
     Dates: start: 20160913, end: 20160913
  7. PACLITAXEL [Suspect]
     Active Substance: PACLITAXEL
     Dosage: 311.5 MG, TIW (1555 MG EVERY 1 WEEK)
     Dates: start: 20190426
  8. DEXAMETHASONE [Concomitant]
     Active Substance: DEXAMETHASONE
     Indication: Prophylaxis
     Dosage: UNK
     Dates: start: 2016
  9. DAFALGAN [Concomitant]
     Active Substance: ACETAMINOPHEN
     Indication: Product used for unknown indication
     Dosage: UNK
     Dates: start: 2016
  10. LERCANIDIPINE HYDROCHLORIDE [Concomitant]
     Active Substance: LERCANIDIPINE HYDROCHLORIDE
     Indication: Blood pressure abnormal
     Dosage: 5 MG, QD
  11. PIPERACILLIN SODIUM\TAZOBACTAM SODIUM [Concomitant]
     Active Substance: PIPERACILLIN SODIUM\TAZOBACTAM SODIUM
     Indication: Bacterial infection
     Dosage: UNK
     Dates: start: 20160929
  12. PIPERACILLIN SODIUM\TAZOBACTAM SODIUM [Concomitant]
     Active Substance: PIPERACILLIN SODIUM\TAZOBACTAM SODIUM
     Dosage: UNK
     Dates: start: 20160929
  13. TRAMADOL HYDROCHLORIDE [Concomitant]
     Active Substance: TRAMADOL HYDROCHLORIDE
     Indication: Product used for unknown indication
     Dosage: UNK
  14. NEBIVOLOL [Concomitant]
     Active Substance: NEBIVOLOL
     Indication: Hypertension
     Dosage: UNK
     Dates: start: 20160929
  15. NEBIVOLOL [Concomitant]
     Active Substance: NEBIVOLOL
     Indication: Blood pressure abnormal
     Dosage: 5 MG, QD
     Dates: start: 20161005
  16. FLAGYL [Concomitant]
     Active Substance: METRONIDAZOLE\METRONIDAZOLE HYDROCHLORIDE
     Indication: Bacterial infection
     Dosage: UNK
     Dates: start: 20161001
  17. FLAGYL [Concomitant]
     Active Substance: METRONIDAZOLE\METRONIDAZOLE HYDROCHLORIDE
     Dosage: UNK
     Dates: start: 20160929
  18. ALIZAPRIDE HYDROCHLORIDE [Concomitant]
     Active Substance: ALIZAPRIDE HYDROCHLORIDE
     Indication: Product used for unknown indication
     Dosage: UNK
     Dates: start: 201605
  19. PERINDOPRIL [Concomitant]
     Active Substance: PERINDOPRIL
     Indication: Blood pressure abnormal
     Dosage: 5 MG, QD
     Dates: start: 20161005
  20. PANTOMED [Concomitant]
     Indication: Product used for unknown indication
     Dosage: 40 MG, QD
     Dates: start: 2016
  21. CETIRIZINE HYDROCHLORIDE [Concomitant]
     Active Substance: CETIRIZINE HYDROCHLORIDE
     Indication: Prophylaxis
     Dosage: UNK
     Dates: start: 2016
  22. MOXONIDINE [Concomitant]
     Active Substance: MOXONIDINE
     Indication: Product used for unknown indication
     Dosage: UNK
     Dates: start: 201612

REACTIONS (13)
  - Polyneuropathy [Not Recovered/Not Resolved]
  - Mastoiditis [Recovered/Resolved]
  - Hypertension [Not Recovered/Not Resolved]
  - Infected lymphocele [Recovered/Resolved]
  - Meningitis [Recovered/Resolved]
  - Intervertebral disc protrusion [Not Recovered/Not Resolved]
  - Dyspnoea [Not Recovered/Not Resolved]
  - Constipation [Not Recovered/Not Resolved]
  - Nausea [Not Recovered/Not Resolved]
  - Fatigue [Not Recovered/Not Resolved]
  - Arthralgia [Not Recovered/Not Resolved]
  - Overdose [Unknown]
  - Off label use [Unknown]

NARRATIVE: CASE EVENT DATE: 20160426
